FAERS Safety Report 5261820-7 (Version None)
Quarter: 2007Q1

REPORT INFORMATION
  Report Type: 
  Country: None (occurrence: None)
  Receive Date: 20070310
  Receipt Date: 20070228
  Transmission Date: 20070707
  Serious: Yes (Hospitalization)
  Sender: FDA-Public Use
  Company Number: 2007UW02397

PATIENT
  Age: 33 Year
  Sex: Male
  Weight: 95.5 kg

DRUGS (3)
  1. SEROQUEL [Suspect]
     Indication: DEPRESSION
     Route: 048
     Dates: start: 20011213, end: 20060301
  2. LITHIUM CARBONATE [Concomitant]
     Dates: start: 19990101, end: 20020101
  3. DEPAKOTE [Concomitant]
     Dates: start: 19990101, end: 20020101

REACTIONS (2)
  - DIABETES MELLITUS [None]
  - HERNIA [None]
